FAERS Safety Report 10539962 (Version 1)
Quarter: 2014Q4

REPORT INFORMATION
  Report Type: Spontaneous
  Country: US (occurrence: None)
  Receive Date: 20141023
  Receipt Date: 20141023
  Transmission Date: 20150529
  Serious: Yes (Death, Life-Threatening, Hospitalization)
  Sender: FDA-Public Use
  Company Number: None

PATIENT
  Age: 89 Year
  Sex: Female

DRUGS (1)
  1. ELIQUIS [Suspect]
     Active Substance: APIXABAN
     Indication: ATRIAL FIBRILLATION
     Dosage: ONCE DAILY TAKEN BY MOUTH
     Route: 048
     Dates: start: 20140609, end: 20140817

REACTIONS (4)
  - Epistaxis [None]
  - Renal failure [None]
  - Dialysis [None]
  - Shock [None]

NARRATIVE: CASE EVENT DATE: 20140828
